FAERS Safety Report 22010607 (Version 1)
Quarter: 2023Q1

REPORT INFORMATION
  Report Type: Spontaneous
  Country: IN (occurrence: IN)
  Receive Date: 20230220
  Receipt Date: 20230220
  Transmission Date: 20230418
  Serious: Yes (Death, Hospitalization)
  Sender: FDA-Public Use
  Company Number: IN-drreddys-LIT/IND/23/0161259

PATIENT
  Age: 50 Year
  Sex: Male

DRUGS (11)
  1. DEXAMETHASONE [Suspect]
     Active Substance: DEXAMETHASONE
     Indication: Prophylaxis against graft versus host disease
  2. CIPROFLOXACIN [Suspect]
     Active Substance: CIPROFLOXACIN
     Indication: Aeromonas infection
  3. MYCOPHENOLATE MOFETIL [Suspect]
     Active Substance: MYCOPHENOLATE MOFETIL
     Indication: Prophylaxis against graft versus host disease
  4. AVIBACTAM SODIUM\CEFTAZIDIME [Suspect]
     Active Substance: AVIBACTAM SODIUM\CEFTAZIDIME
     Indication: Aeromonas infection
  5. CLINDAMYCIN [Suspect]
     Active Substance: CLINDAMYCIN
     Indication: Product used for unknown indication
  6. CEFOPERAZONE [Concomitant]
     Active Substance: CEFOPERAZONE
     Indication: Product used for unknown indication
  7. SULBACTAM [Concomitant]
     Active Substance: SULBACTAM
     Indication: Product used for unknown indication
  8. MEROPENEM [Concomitant]
     Active Substance: MEROPENEM
     Indication: Aeromonas infection
  9. POLYMYXIN B [Concomitant]
     Active Substance: POLYMYXIN B
     Indication: Aeromonas infection
  10. TEICOPLANIN [Concomitant]
     Active Substance: TEICOPLANIN
     Indication: Aeromonas infection
  11. ANIDULAFUNGIN [Concomitant]
     Active Substance: ANIDULAFUNGIN
     Indication: Aeromonas infection

REACTIONS (10)
  - Bacterial sepsis [Fatal]
  - Hyponatraemia [Unknown]
  - Necrotising fasciitis [Unknown]
  - Fournier^s gangrene [Unknown]
  - Multiple organ dysfunction syndrome [Unknown]
  - Aeromonas infection [Unknown]
  - Renal failure [Unknown]
  - Thrombocytopenia [Unknown]
  - Leukocytosis [Unknown]
  - Product use in unapproved indication [Unknown]
